FAERS Safety Report 13671725 (Version 1)
Quarter: 2017Q2

REPORT INFORMATION
  Report Type: Spontaneous
  Country: US (occurrence: US)
  Receive Date: 20170620
  Receipt Date: 20170620
  Transmission Date: 20170830
  Serious: No
  Sender: FDA-Public Use
  Company Number: US-ROCHE-1385452

PATIENT
  Sex: Female

DRUGS (7)
  1. COMPAZINE [Concomitant]
     Active Substance: PROCHLORPERAZINE MALEATE
  2. VITAMIN D3 [Concomitant]
     Active Substance: CHOLECALCIFEROL
  3. COUMADIN [Concomitant]
     Active Substance: WARFARIN SODIUM
  4. AMBIEN [Concomitant]
     Active Substance: ZOLPIDEM TARTRATE
  5. XELODA [Suspect]
     Active Substance: CAPECITABINE
     Indication: BREAST CANCER
     Route: 048
     Dates: start: 20130424
  6. AROMASIN [Concomitant]
     Active Substance: EXEMESTANE
  7. VITAMIN B6 [Concomitant]
     Active Substance: PYRIDOXINE HYDROCHLORIDE

REACTIONS (1)
  - Palmar-plantar erythrodysaesthesia syndrome [Not Recovered/Not Resolved]
